FAERS Safety Report 23816689 (Version 1)
Quarter: 2024Q2

REPORT INFORMATION
  Report Type: Spontaneous
  Country: FR (occurrence: FR)
  Receive Date: 20240504
  Receipt Date: 20240504
  Transmission Date: 20240715
  Serious: Yes (Death, Other)
  Sender: FDA-Public Use
  Company Number: FR-INCYTE CORPORATION-2024IN000897

PATIENT
  Age: 63 Year
  Sex: Male

DRUGS (4)
  1. FLUOROURACIL [Suspect]
     Active Substance: FLUOROURACIL
     Indication: Product used for unknown indication
     Dosage: UNK
     Route: 065
  2. LEUCOVORIN [Suspect]
     Active Substance: LEUCOVORIN\LEUCOVORIN CALCIUM
     Indication: Product used for unknown indication
     Dosage: UNK
     Route: 065
  3. OXALIPLATIN [Suspect]
     Active Substance: OXALIPLATIN
     Indication: Product used for unknown indication
     Dosage: UNK
     Route: 065
  4. PEMAZYRE [Suspect]
     Active Substance: PEMIGATINIB
     Indication: Cholangiocarcinoma
     Dosage: 13.5 MILLIGRAM, ONCE A DAY FOR 14 DAYS FOLLOWED BY A 7- DAY BREAK
     Route: 065
     Dates: start: 20230821, end: 20231204

REACTIONS (7)
  - Death [Fatal]
  - General physical health deterioration [Unknown]
  - Cholangiocarcinoma [Unknown]
  - Pain [Unknown]
  - Disease progression [Unknown]
  - Drug ineffective [Unknown]
  - Breast mass [Unknown]

NARRATIVE: CASE EVENT DATE: 20231101
